FAERS Safety Report 6135265-1 (Version None)
Quarter: 2009Q1

REPORT INFORMATION
  Report Type: 
  Country: None (occurrence: None)
  Receive Date: 20090327
  Receipt Date: 20090313
  Transmission Date: 20090719
  Serious: Yes (Death)
  Sender: FDA-Public Use
  Company Number: JP-GENENTECH-276721

PATIENT
  Sex: Male
  Weight: 57.5 kg

DRUGS (18)
  1. AVASTIN [Suspect]
     Indication: COLON CANCER
     Dosage: 280 MG, 2/MONTH
     Route: 041
     Dates: start: 20090106, end: 20090120
  2. OXALIPLATIN [Suspect]
     Indication: COLON CANCER
     Dosage: 127.5 MG, Q2W
     Route: 041
     Dates: start: 20051013, end: 20090120
  3. FLUOROURACIL [Suspect]
     Indication: COLON CANCER METASTATIC
     Dosage: 600 MG, Q2W
     Route: 042
     Dates: start: 20051013, end: 20090121
  4. CALCIUM LEVOFOLINATE [Suspect]
     Indication: COLON CANCER METASTATIC
     Dosage: 300 MG, Q2W
     Route: 042
     Dates: start: 20051013, end: 20090120
  5. ASPIRIN [Concomitant]
     Indication: DRUG USE FOR UNKNOWN INDICATION
  6. DOXAZOSIN MESYLATE [Concomitant]
     Indication: DRUG USE FOR UNKNOWN INDICATION
  7. NORVASC [Concomitant]
     Indication: DRUG USE FOR UNKNOWN INDICATION
  8. ZYLORIC [Concomitant]
     Indication: DRUG USE FOR UNKNOWN INDICATION
  9. DEPAS [Concomitant]
     Indication: DRUG USE FOR UNKNOWN INDICATION
  10. LOXONIN [Concomitant]
     Indication: DRUG USE FOR UNKNOWN INDICATION
  11. TEPRENONE [Concomitant]
     Indication: DRUG USE FOR UNKNOWN INDICATION
  12. PRIMPERAN [Concomitant]
     Indication: DRUG USE FOR UNKNOWN INDICATION
  13. ALLEGRA [Concomitant]
     Indication: DRUG USE FOR UNKNOWN INDICATION
  14. ALINAMIN F [Concomitant]
     Indication: DRUG USE FOR UNKNOWN INDICATION
  15. ATARAX [Concomitant]
     Indication: DRUG USE FOR UNKNOWN INDICATION
  16. KYTRIL [Concomitant]
     Indication: DRUG USE FOR UNKNOWN INDICATION
     Dosage: UNK
     Dates: start: 20090106, end: 20090120
  17. DECADRON [Concomitant]
     Indication: DRUG USE FOR UNKNOWN INDICATION
     Dosage: UNK
     Dates: start: 20090106, end: 20090120
  18. CAMPTOSAR [Concomitant]
     Indication: DRUG USE FOR UNKNOWN INDICATION
     Dosage: UNK
     Dates: start: 20070206, end: 20081016

REACTIONS (1)
  - INTERSTITIAL LUNG DISEASE [None]
